FAERS Safety Report 17080058 (Version 2)
Quarter: 2020Q1

REPORT INFORMATION
  Report Type: Spontaneous
  Country: US (occurrence: US)
  Receive Date: 20191127
  Receipt Date: 20200121
  Transmission Date: 20200409
  Serious: No
  Sender: FDA-Public Use
  Company Number: NVSC2019US047555

PATIENT
  Sex: Male

DRUGS (2)
  1. PROMACTA [Suspect]
     Active Substance: ELTROMBOPAG OLAMINE
     Dosage: 50 MG, QD (ON MONDAY, WEDNESDAY AND FRIDAY) STRENGHT- 50 MG
     Route: 048
     Dates: start: 20190924
  2. PROMACTA [Suspect]
     Active Substance: ELTROMBOPAG OLAMINE
     Indication: IMMUNE THROMBOCYTOPENIC PURPURA
     Dosage: 25 MG, QD (ON TUESDAY, THURSDAY, SATURDAY AND SUNDAY) STRENGHT- 25 MG
     Route: 048
     Dates: start: 20190923

REACTIONS (3)
  - Bone pain [Unknown]
  - Myalgia [Unknown]
  - Insomnia [Unknown]
